FAERS Safety Report 9040688 (Version 1)
Quarter: 2013Q1

REPORT INFORMATION
  Report Type: Report from Study
  Country: US (occurrence: US)
  Receive Date: 20130129
  Receipt Date: 20130129
  Transmission Date: 20140127
  Serious: No
  Sender: FDA-Public Use
  Company Number: US-ABBOTT-12P-163-0893636-00

PATIENT
  Age: 33 Year
  Sex: Female

DRUGS (14)
  1. HUMIRA 40 MG/0.8 ML PEN [Suspect]
     Indication: CROHN^S DISEASE
     Dates: start: 20111114
  2. PENTASA [Concomitant]
     Indication: PRODUCT USED FOR UNKNOWN INDICATION
  3. PRILOSEC [Concomitant]
     Indication: PRODUCT USED FOR UNKNOWN INDICATION
  4. WELLBUTRIN SR [Concomitant]
     Indication: DEPRESSION
  5. CLARITIN [Concomitant]
     Indication: HYPERSENSITIVITY
  6. ALLEGRA [Concomitant]
     Indication: HYPERSENSITIVITY
  7. FERROUS SULFATE [Concomitant]
     Indication: PRODUCT USED FOR UNKNOWN INDICATION
  8. DITROPAN [Concomitant]
     Indication: HYPERTONIC BLADDER
  9. MINOCYCLINE [Concomitant]
     Indication: TREMOR
  10. ULTRAM [Concomitant]
     Indication: HEADACHE
  11. ROBAXIN [Concomitant]
     Indication: MUSCLE SPASMS
  12. LORTAB [Concomitant]
     Indication: PAIN
     Dosage: 5/500MG AS NEEDED
  13. VITAMINS [Concomitant]
     Indication: PRODUCT USED FOR UNKNOWN INDICATION
     Dosage: DAILY
  14. SUPPLEMENTS [Concomitant]
     Indication: PRODUCT USED FOR UNKNOWN INDICATION
     Dosage: DAILY

REACTIONS (4)
  - Bronchitis [Not Recovered/Not Resolved]
  - Pyrexia [Unknown]
  - Sputum discoloured [Unknown]
  - Chest pain [Unknown]
